FAERS Safety Report 5706748-0 (Version None)
Quarter: 2008Q2

REPORT INFORMATION
  Report Type: 
  Country: None (occurrence: None)
  Receive Date: 20080414
  Receipt Date: 20080414
  Transmission Date: 20081010
  Serious: Yes (Hospitalization)
  Sender: FDA-Public Use
  Company Number: None

PATIENT
  Sex: Male
  Weight: 13 kg

DRUGS (2)
  1. CYCLOPHOSPHAMIDE [Suspect]
     Dosage: 1200 MG
  2. TOPOTECAN [Suspect]
     Dosage: 3.5 MG

REACTIONS (5)
  - CARDIAC TAMPONADE [None]
  - PERICARDIAL EFFUSION [None]
  - PNEUMONIA [None]
  - SYNCOPE [None]
  - VIRAL INFECTION [None]
